FAERS Safety Report 21494449 (Version 2)
Quarter: 2022Q4

REPORT INFORMATION
  Report Type: Spontaneous
  Country: US (occurrence: US)
  Receive Date: 20221021
  Receipt Date: 20221109
  Transmission Date: 20230112
  Serious: Yes (Death, Other)
  Sender: FDA-Public Use
  Company Number: US-IDORSIA-001626-2022-US

PATIENT
  Age: 81 Year
  Sex: Male
  Weight: 79.819 kg

DRUGS (2)
  1. QUVIVIQ [Suspect]
     Active Substance: DARIDOREXANT
     Indication: Insomnia
     Dosage: UNK
     Route: 048
     Dates: start: 20220825, end: 20220826
  2. RESTORIL [Concomitant]
     Active Substance: TEMAZEPAM

REACTIONS (2)
  - Completed suicide [Fatal]
  - Gun shot wound [Fatal]

NARRATIVE: CASE EVENT DATE: 20220826
